FAERS Safety Report 9841198 (Version 1)
Quarter: 2014Q1

REPORT INFORMATION
  Report Type: Spontaneous
  Country: ES (occurrence: ES)
  Receive Date: 20140124
  Receipt Date: 20140124
  Transmission Date: 20141002
  Serious: Yes (Other)
  Sender: FDA-Public Use
  Company Number: ES-PFIZER INC-2014018222

PATIENT
  Age: 55 Year
  Sex: Female

DRUGS (1)
  1. VIBRACINA [Suspect]
     Indication: CELLULITIS
     Dosage: UNK
     Route: 048
     Dates: start: 20140107, end: 20140108

REACTIONS (2)
  - Tongue oedema [Recovering/Resolving]
  - Urticaria [Recovering/Resolving]
